FAERS Safety Report 23079495 (Version 1)
Quarter: 2023Q4

REPORT INFORMATION
  Report Type: Spontaneous
  Country: US (occurrence: US)
  Receive Date: 20231018
  Receipt Date: 20231018
  Transmission Date: 20240110
  Serious: No
  Sender: FDA-Public Use
  Company Number: US-MYLANLABS-2023M1098850

PATIENT
  Age: 55 Year
  Sex: Female
  Weight: 72.5 kg

DRUGS (1)
  1. SEMGLEE (INSULIN GLARGINE-YFGN) [Suspect]
     Active Substance: INSULIN GLARGINE-YFGN
     Indication: Type 2 diabetes mellitus
     Dosage: 33 UNITS/GRAM, QD
     Route: 058
     Dates: start: 20230909

REACTIONS (2)
  - Drug ineffective [Unknown]
  - Device delivery system issue [Unknown]
